FAERS Safety Report 5602463-2 (Version None)
Quarter: 2008Q1

REPORT INFORMATION
  Report Type: 
  Country: None (occurrence: None)
  Receive Date: 20080125
  Receipt Date: 20080111
  Transmission Date: 20080703
  Serious: Yes (Other)
  Sender: FDA-Public Use
  Company Number: US-ELI_LILLY_AND_COMPANY-US200801002535

PATIENT
  Age: 44 Year
  Sex: Female
  Weight: 102.4 kg

DRUGS (1)
  1. CYMBALTA [Suspect]
     Indication: MIGRAINE
     Dosage: 60 MG, DAILY (1/D)
     Route: 048
     Dates: start: 20050802, end: 20071025

REACTIONS (9)
  - ALOPECIA [None]
  - DEPRESSION [None]
  - DRUG WITHDRAWAL SYNDROME [None]
  - FATIGUE [None]
  - HOT FLUSH [None]
  - LOSS OF LIBIDO [None]
  - MOOD SWINGS [None]
  - PARAESTHESIA [None]
  - PERSONALITY CHANGE [None]
